FAERS Safety Report 13303196 (Version 1)
Quarter: 2017Q1

REPORT INFORMATION
  Report Type: Spontaneous
  Country: US (occurrence: US)
  Receive Date: 20170307
  Receipt Date: 20170307
  Transmission Date: 20170428
  Serious: No
  Sender: FDA-Public Use
  Company Number: US-MYLANLABS-2016M1047491

PATIENT
  Age: 17 Year
  Sex: Female

DRUGS (2)
  1. OLUX-E [Suspect]
     Active Substance: CLOBETASOL PROPIONATE
     Indication: ECZEMA
     Dosage: UNK
     Route: 061
  2. OLUX [Concomitant]
     Active Substance: CLOBETASOL PROPIONATE
     Indication: ECZEMA
     Dosage: UNK

REACTIONS (2)
  - Drug ineffective [Unknown]
  - Product substitution issue [None]
